FAERS Safety Report 7354606-0 (Version None)
Quarter: 2011Q1

REPORT INFORMATION
  Report Type: 
  Country: None (occurrence: None)
  Receive Date: 20110316
  Receipt Date: 20110314
  Transmission Date: 20110831
  Serious: No
  Sender: FDA-Public Use
  Company Number: US-PFIZER INC-2010150860

PATIENT
  Sex: Female
  Weight: 74.83 kg

DRUGS (5)
  1. LEXAPRO [Suspect]
     Indication: DEPRESSION
     Dosage: 5 MG, 1X/DAY
     Route: 048
     Dates: start: 20060101, end: 20100101
  2. FEMARA [Concomitant]
     Indication: BREAST CANCER FEMALE
     Dosage: UNK
     Route: 048
     Dates: end: 20100501
  3. TAMOXIFEN [Concomitant]
     Indication: BREAST CANCER FEMALE
     Dosage: UNK
     Route: 048
     Dates: end: 20100501
  4. PRISTIQ [Suspect]
     Indication: DEPRESSION
     Dosage: 50 MG, 1X/DAY
     Route: 048
     Dates: start: 20101101, end: 20110313
  5. WELLBUTRIN [Suspect]
     Indication: DEPRESSION
     Dosage: 100 MG, 1X/DAY
     Route: 048
     Dates: start: 20100101, end: 20100101

REACTIONS (3)
  - SEDATION [None]
  - HEADACHE [None]
  - SOMNOLENCE [None]
